FAERS Safety Report 5810323-7 (Version None)
Quarter: 2008Q3

REPORT INFORMATION
  Report Type: 
  Country: None (occurrence: None)
  Receive Date: 20080715
  Receipt Date: 20080707
  Transmission Date: 20090109
  Serious: Yes (Other)
  Sender: FDA-Public Use
  Company Number: HQWYE325622JUL04

PATIENT
  Sex: Female

DRUGS (3)
  1. PREMPRO [Suspect]
     Indication: HORMONE REPLACEMENT THERAPY
     Dosage: NOT PROVIDED
     Route: 048
     Dates: end: 19990101
  2. PROVERA [Suspect]
  3. PREMARIN [Suspect]

REACTIONS (2)
  - CONTRALATERAL BREAST CANCER [None]
  - HYPERPLASIA [None]
